FAERS Safety Report 11754633 (Version 1)
Quarter: 2015Q4

REPORT INFORMATION
  Report Type: Spontaneous
  Country: US (occurrence: None)
  Receive Date: 20151118
  Receipt Date: 20151118
  Transmission Date: 20160304
  Serious: Yes (Other)
  Sender: FDA-Public Use
  Company Number: None

PATIENT
  Age: 5 Year
  Sex: Male
  Weight: 21.4 kg

DRUGS (1)
  1. DEXMETHYLPHENIDATE HCL [Suspect]
     Active Substance: DEXMETHYLPHENIDATE HYDROCHLORIDE
     Indication: ATTENTION DEFICIT/HYPERACTIVITY DISORDER
     Route: 048
     Dates: start: 20140112

REACTIONS (6)
  - Drug ineffective [None]
  - Agitation [None]
  - Condition aggravated [None]
  - Screaming [None]
  - Abnormal behaviour [None]
  - Crying [None]

NARRATIVE: CASE EVENT DATE: 20140112
